FAERS Safety Report 10018969 (Version 4)
Quarter: 2014Q3

REPORT INFORMATION
  Report Type: Report from Study
  Country: ZA (occurrence: ZA)
  Receive Date: 20140318
  Receipt Date: 20140917
  Transmission Date: 20150326
  Serious: Yes (Hospitalization)
  Sender: FDA-Public Use
  Company Number: ZA-GLAXOSMITHKLINE-B0800408D

PATIENT
  Age: 74 Year
  Sex: Male
  Weight: 95.2 kg

DRUGS (20)
  1. DISPRIN [Concomitant]
     Active Substance: ASPIRIN
     Indication: OROPHARYNGEAL PAIN
  2. RYTHMOL [Concomitant]
     Active Substance: PROPAFENONE HYDROCHLORIDE
     Indication: SUPRAVENTRICULAR TACHYARRHYTHMIA
     Dosage: 150MG THREE TIMES PER DAY
     Route: 048
     Dates: start: 20120328, end: 20140808
  3. DISPRIN [Concomitant]
     Active Substance: ASPIRIN
     Indication: OROPHARYNGEAL PAIN
     Dosage: 300MG TWICE PER DAY
     Route: 048
     Dates: start: 1993, end: 20140808
  4. SPIRACTIN [Concomitant]
     Active Substance: SPIRONOLACTONE
     Indication: CARDIAC FAILURE
     Dosage: 12.5MG PER DAY
     Route: 048
     Dates: start: 20131113, end: 20140808
  5. SIMVASTATIN. [Concomitant]
     Active Substance: SIMVASTATIN
     Indication: HYPERCHOLESTEROLAEMIA
     Dosage: 20MG PER DAY
     Route: 048
     Dates: start: 1993, end: 20140808
  6. GAVISCON [Concomitant]
     Active Substance: ALUMINUM HYDROXIDE\MAGNESIUM CARBONATE
     Indication: DYSPEPSIA
     Route: 048
     Dates: start: 20130109
  7. OMEPRAZOLE. [Concomitant]
     Active Substance: OMEPRAZOLE
     Indication: DYSPEPSIA
     Dosage: 20MG PER DAY
     Route: 048
     Dates: start: 20130922
  8. WARFARIN [Concomitant]
     Active Substance: WARFARIN
     Indication: PULMONARY EMBOLISM
     Dosage: 3MG PER DAY
     Route: 048
     Dates: start: 20131117, end: 20140808
  9. LASIX [Concomitant]
     Active Substance: FUROSEMIDE
     Indication: CARDIAC FAILURE
     Dosage: 80MG TWICE PER DAY
     Route: 048
     Dates: start: 20131113, end: 20140307
  10. FLUTICASONE FUROATE [Suspect]
     Active Substance: FLUTICASONE FUROATE
     Indication: CHRONIC OBSTRUCTIVE PULMONARY DISEASE
     Dosage: 100MCG PER DAY
     Route: 055
     Dates: start: 20111110
  11. ALTOSEC [Concomitant]
     Active Substance: OMEPRAZOLE
     Indication: GASTROOESOPHAGEAL REFLUX DISEASE
     Dosage: 20MG PER DAY
     Route: 048
     Dates: start: 201012, end: 20140808
  12. COMBIVENT [Concomitant]
     Active Substance: ALBUTEROL SULFATE\IPRATROPIUM BROMIDE
     Indication: CHRONIC OBSTRUCTIVE PULMONARY DISEASE
     Route: 055
     Dates: start: 201006
  13. RANMOXY [Concomitant]
     Indication: OROPHARYNGEAL PAIN
     Dosage: 500MG TWICE PER DAY
     Route: 048
     Dates: start: 20140227, end: 20140306
  14. AMOXICILLIN TRIHYDRATE [Concomitant]
     Active Substance: AMOXICILLIN
     Indication: OROPHARYNGEAL PAIN
     Dosage: 500MG TWICE PER DAY
     Route: 048
     Dates: start: 20140117, end: 20140131
  15. CARDICOR [Concomitant]
     Active Substance: BISOPROLOL
     Indication: MYOCARDIAL ISCHAEMIA
     Dosage: 2.5MG PER DAY
     Route: 048
     Dates: start: 20131011, end: 20140808
  16. AMOXICILLIN TRIHYDRATE [Concomitant]
     Active Substance: AMOXICILLIN
     Indication: OROPHARYNGEAL PAIN
     Dosage: 1000MG TWICE PER DAY
     Route: 048
     Dates: start: 20140117, end: 20140131
  17. SLOW K [Concomitant]
     Active Substance: POTASSIUM CHLORIDE
     Indication: CARDIAC FAILURE
     Dosage: 600MG TWICE PER DAY
     Route: 048
     Dates: start: 20131117, end: 20140307
  18. UNKNOWN DRUG [Concomitant]
     Active Substance: UNSPECIFIED INGREDIENT
     Indication: OROPHARYNGEAL PAIN
     Dosage: 1000MG TWICE PER DAY
     Route: 048
     Dates: start: 20140227, end: 20140306
  19. PURICOS [Concomitant]
     Active Substance: ALLOPURINOL
     Indication: GOUT
     Dosage: 300MG PER DAY
     Route: 048
     Dates: start: 2007, end: 20140808
  20. PREXUM [Concomitant]
     Active Substance: PERINDOPRIL ERBUMINE
     Indication: HYPERTENSION
     Dosage: 8MG PER DAY
     Route: 048
     Dates: start: 201101, end: 20140808

REACTIONS (1)
  - Bronchitis [Recovered/Resolved]

NARRATIVE: CASE EVENT DATE: 20140301
